FAERS Safety Report 10273708 (Version 3)
Quarter: 2014Q3

REPORT INFORMATION
  Report Type: Spontaneous
  Country: US (occurrence: US)
  Receive Date: 20140702
  Receipt Date: 20140804
  Transmission Date: 20150326
  Serious: Yes (Hospitalization, Other)
  Sender: FDA-Public Use
  Company Number: US-AMGEN-USASP2014040826

PATIENT
  Age: 69 Year
  Sex: Female

DRUGS (1)
  1. NPLATE [Suspect]
     Active Substance: ROMIPLOSTIM
     Indication: THROMBOCYTOPENIA
     Dosage: 56 MUG, UNK
     Route: 065
     Dates: start: 20130710

REACTIONS (7)
  - Traumatic haematoma [Unknown]
  - Dyspnoea [Unknown]
  - Platelet count abnormal [Not Recovered/Not Resolved]
  - Gingival bleeding [Unknown]
  - Heart rate increased [Unknown]
  - Haemoptysis [Unknown]
  - Therapeutic response decreased [Unknown]
